FAERS Safety Report 17472573 (Version 1)
Quarter: 2020Q1

REPORT INFORMATION
  Report Type: Spontaneous
  Country: US (occurrence: US)
  Receive Date: 20200217
  Receipt Date: 20200217
  Transmission Date: 20200409
  Serious: Yes (Hospitalization)
  Sender: FDA-Public Use
  Company Number: None

PATIENT
  Age: 55 Year
  Sex: Female

DRUGS (12)
  1. LORATADINE. [Concomitant]
     Active Substance: LORATADINE
  2. EPIPEN [Concomitant]
     Active Substance: EPINEPHRINE
  3. OXYBUTYNIN. [Concomitant]
     Active Substance: OXYBUTYNIN CHLORIDE
  4. SIMVASTATIN. [Concomitant]
     Active Substance: SIMVASTATIN
  5. VENTOLIN HFA [Concomitant]
     Active Substance: ALBUTEROL SULFATE
  6. CETIRIZINE [Concomitant]
     Active Substance: CETIRIZINE HYDROCHLORIDE
  7. SYMBICORT [Concomitant]
     Active Substance: BUDESONIDE\FORMOTEROL FUMARATE DIHYDRATE
  8. NUCALA [Suspect]
     Active Substance: MEPOLIZUMAB
     Indication: ASTHMA
     Dosage: ?          OTHER FREQUENCY:Q4WKS;?
     Route: 058
     Dates: start: 20190522
  9. CLONAZEPAM. [Concomitant]
     Active Substance: CLONAZEPAM
  10. BUPROPION. [Concomitant]
     Active Substance: BUPROPION
  11. RANITIDINE. [Concomitant]
     Active Substance: RANITIDINE
  12. PHETERMIN [Concomitant]

REACTIONS (2)
  - Therapy cessation [None]
  - Malaise [None]
